FAERS Safety Report 6192023-X (Version None)
Quarter: 2009Q2

REPORT INFORMATION
  Report Type: 
  Country: None (occurrence: None)
  Receive Date: 20090515
  Receipt Date: 20090508
  Transmission Date: 20091009
  Serious: Yes (Congenital Anomaly)
  Sender: FDA-Public Use
  Company Number: US-GILEAD-2009-0021634

PATIENT
  Sex: Female
  Weight: 2.82 kg

DRUGS (2)
  1. TRUVADA [Suspect]
     Route: 064
     Dates: start: 20080305
  2. LOPINAVIR AND RITONAVIR [Concomitant]
     Route: 048
     Dates: start: 20080305

REACTIONS (3)
  - MATERNAL DRUGS AFFECTING FOETUS [None]
  - POLYDACTYLY [None]
  - PREMATURE BABY [None]
